FAERS Safety Report 20415159 (Version 1)
Quarter: 2022Q1

REPORT INFORMATION
  Report Type: Spontaneous
  Country: NL (occurrence: NL)
  Receive Date: 20220202
  Receipt Date: 20220202
  Transmission Date: 20220423
  Serious: Yes (Other)
  Sender: FDA-Public Use
  Company Number: None

PATIENT
  Age: 78 Year
  Sex: Female
  Weight: 56 kg

DRUGS (3)
  1. CLOPIDOGREL [Suspect]
     Active Substance: CLOPIDOGREL BISULFATE
     Indication: Amaurosis fugax
     Dosage: 75 MILLIGRAM DAILY; 1 X PER DAY 1 PIECE, FORM STRENGTH: 75MG / BRAND NAME NOT SPECIFIED, THERAPY END
     Dates: start: 20211006
  2. AMLODIPINE [Concomitant]
     Active Substance: AMLODIPINE BESYLATE
     Dosage: FORM STRENGTH: 5MG / BRAND NAME NOT SPECIFIED, THERAPY START DATE AND END DATE: ASKED BUT UNKNOWN
  3. SIMVASTATIN [Concomitant]
     Active Substance: SIMVASTATIN
     Dosage: FO, FORM STRENGTH: 20MG / BRAND NAME NOT SPECIFIED, THERAPY START DATE AND END DATE: ASKED BUT UNKNO

REACTIONS (1)
  - Intestinal haemorrhage [Recovered/Resolved]

NARRATIVE: CASE EVENT DATE: 20220104
